FAERS Safety Report 8832875 (Version 1)
Quarter: 2012Q4

REPORT INFORMATION
  Report Type: Spontaneous
  Country: US (occurrence: None)
  Receive Date: 20121009
  Receipt Date: 20121009
  Transmission Date: 20130627
  Serious: Yes (Other)
  Sender: FDA-Public Use
  Company Number: None

PATIENT
  Age: 39 Year
  Sex: Male
  Weight: 90.72 kg

DRUGS (2)
  1. CYMBALTA [Suspect]
     Indication: BACK PAIN
     Dosage: morning
     Dates: start: 20120201, end: 20120501
  2. CYMBALTA [Suspect]
     Indication: MOOD DISORDER NOS
     Dosage: morning
     Dates: start: 20120501, end: 20120901

REACTIONS (9)
  - Dizziness [None]
  - Drug withdrawal syndrome [None]
  - Nausea [None]
  - Vomiting [None]
  - Fatigue [None]
  - Hyperhidrosis [None]
  - Chills [None]
  - Paraesthesia [None]
  - Paraesthesia [None]
